FAERS Safety Report 6559793-X (Version None)
Quarter: 2010Q1

REPORT INFORMATION
  Report Type: 
  Country: None (occurrence: None)
  Receive Date: 20100129
  Receipt Date: 20090909
  Transmission Date: 20100710
  Serious: No
  Sender: FDA-Public Use
  Company Number: US-ABBOTT-09P-163-0596906-00

PATIENT
  Sex: Male
  Weight: 119.4 kg

DRUGS (3)
  1. HUMIRA [Suspect]
     Indication: PSORIASIS
     Dates: start: 20090909, end: 20090909
  2. UNKNOWN HIGH CHOLESTEROL MEDICATION [Concomitant]
     Indication: BLOOD CHOLESTEROL INCREASED
  3. CHANTIX [Concomitant]
     Indication: SMOKING CESSATION THERAPY

REACTIONS (1)
  - INJECTION SITE PAIN [None]
